FAERS Safety Report 5228000-2 (Version None)
Quarter: 2007Q1

REPORT INFORMATION
  Report Type: 
  Country: None (occurrence: None)
  Receive Date: 20061205
  Receipt Date: 20061010
  Transmission Date: 20070707
  Serious: No
  Sender: FDA-Public Use
  Company Number: PHEH2006US12786

PATIENT
  Age: 61 Year
  Sex: Male

DRUGS (1)
  1. EXJADE [Suspect]
     Dosage: 1 G, QD, ORAL
     Route: 048
     Dates: start: 20060819

REACTIONS (1)
  - WEIGHT INCREASED [None]
